FAERS Safety Report 6429044-5 (Version None)
Quarter: 2009Q4

REPORT INFORMATION
  Report Type: 
  Country: None (occurrence: None)
  Receive Date: 20091102
  Receipt Date: 20091029
  Transmission Date: 20100525
  Serious: Yes (Death, Congenital Anomaly)
  Sender: FDA-Public Use
  Company Number: 2009SP031899

PATIENT
  Age: 1 Day
  Sex: Female

DRUGS (1)
  1. RIBAVIRIN [Suspect]
     Dosage: TRPL
     Route: 064

REACTIONS (3)
  - HYDROCEPHALUS [None]
  - MATERNAL DRUGS AFFECTING FOETUS [None]
  - SPINA BIFIDA [None]
